FAERS Safety Report 13166950 (Version 1)
Quarter: 2017Q1

REPORT INFORMATION
  Report Type: Spontaneous
  Country: TW (occurrence: TW)
  Receive Date: 20170131
  Receipt Date: 20170131
  Transmission Date: 20170428
  Serious: Yes (Death)
  Sender: FDA-Public Use
  Company Number: TW-KERYX BIOPHARMA UK LTD-2017TW002510

PATIENT
  Age: 90 Year
  Sex: Female

DRUGS (1)
  1. NEPHOXIL [Suspect]
     Active Substance: FERRIC CITRATE ANHYDROUS
     Indication: HYPERPHOSPHATAEMIA
     Dosage: UNK
     Route: 048
     Dates: start: 20151216, end: 20151218

REACTIONS (1)
  - Respiratory disorder [Fatal]
